FAERS Safety Report 6400727-6 (Version None)
Quarter: 2009Q4

REPORT INFORMATION
  Report Type: 
  Country: None (occurrence: None)
  Receive Date: 20091014
  Receipt Date: 20091007
  Transmission Date: 20100525
  Serious: Yes (Hospitalization)
  Sender: FDA-Public Use
  Company Number: US-GILEAD-2009-0024681

PATIENT
  Sex: Female

DRUGS (10)
  1. LETAIRIS [Suspect]
     Indication: PULMONARY ARTERIAL HYPERTENSION
     Route: 048
     Dates: start: 20090910
  2. COUMADIN [Concomitant]
  3. BISMUTH SUBCITRATE TRIPOTASSIUM [Concomitant]
  4. NIFEDIPINE [Concomitant]
  5. SINGULAIR [Concomitant]
  6. ZOCOR [Concomitant]
  7. ZETIA [Concomitant]
  8. ARICEPT [Concomitant]
  9. PREDNISONE TAB [Concomitant]
  10. BONIVA [Concomitant]

REACTIONS (3)
  - HAEMORRHAGE [None]
  - RED BLOOD CELL COUNT DECREASED [None]
  - TRANSFUSION [None]
